FAERS Safety Report 19420293 (Version 2)
Quarter: 2021Q2

REPORT INFORMATION
  Report Type: Spontaneous
  Country: DE (occurrence: DE)
  Receive Date: 20210616
  Receipt Date: 20210621
  Transmission Date: 20210717
  Serious: Yes (Other)
  Sender: FDA-Public Use
  Company Number: DE-AUROBINDO-AUR-APL-2021-024085

PATIENT
  Age: 1 Day
  Sex: Male
  Weight: 2.7 kg

DRUGS (4)
  1. ATOSIL [ISOPROMETHAZINE HYDROCHLORIDE] [Suspect]
     Active Substance: ISOPROMETHAZINE HYDROCHLORIDE
     Indication: SLEEP DISORDER
     Dosage: 25 MICROGRAM/DOSIS, ONCE A DAY
     Route: 064
     Dates: start: 20200419, end: 20201223
  2. L?THYROXIN [Concomitant]
     Active Substance: LEVOTHYROXINE SODIUM
     Indication: HYPOTHYROIDISM
     Dosage: [?G/D (BIS ?) ]
     Route: 064
     Dates: start: 20200419, end: 20210119
  3. FOLIC ACID. [Concomitant]
     Active Substance: FOLIC ACID
     Indication: PROPHYLAXIS OF NEURAL TUBE DEFECT
     Route: 064
  4. VENLAFAXINE [Suspect]
     Active Substance: VENLAFAXINE HYDROCHLORIDE
     Indication: DEPRESSION
     Dosage: 225 MG/DL
     Route: 064
     Dates: start: 20200419, end: 20210119

REACTIONS (2)
  - Small for dates baby [Recovered/Resolved]
  - Foetal exposure during pregnancy [Unknown]

NARRATIVE: CASE EVENT DATE: 20210119
